FAERS Safety Report 16854289 (Version 1)
Quarter: 2019Q3

REPORT INFORMATION
  Report Type: Spontaneous
  Country: DE (occurrence: DE)
  Receive Date: 20190926
  Receipt Date: 20190926
  Transmission Date: 20191005
  Serious: Yes (Hospitalization)
  Sender: FDA-Public Use
  Company Number: DE-DRREDDYS-GER/GER/19/0114394

PATIENT
  Age: 15 Year
  Sex: Female

DRUGS (6)
  1. DIPHENHYDRAMINE CHLORIDE [Suspect]
     Active Substance: DIPHENHYDRAMINE HYDROCHLORIDE
     Indication: SUICIDE ATTEMPT
     Route: 065
  2. MIRTAZAPINE. [Suspect]
     Active Substance: MIRTAZAPINE
     Indication: DEPRESSIVE DELUSION
     Dosage: 30 MILLIGRAM DAILY;
     Route: 065
  3. MIRTAZAPINE. [Suspect]
     Active Substance: MIRTAZAPINE
     Route: 065
  4. PARACETAMOL [Suspect]
     Active Substance: ACETAMINOPHEN
     Indication: SUICIDE ATTEMPT
     Route: 065
  5. MIRTAZAPINE. [Suspect]
     Active Substance: MIRTAZAPINE
     Dosage: 15 MILLIGRAM DAILY; TOTAL DURATION: 7 WEEKS
     Route: 065
  6. OLANZAPINE. [Suspect]
     Active Substance: OLANZAPINE
     Indication: DEPRESSIVE DELUSION
     Dosage: 10 MILLIGRAM DAILY;
     Route: 065

REACTIONS (5)
  - Suicide attempt [Unknown]
  - Overdose [Unknown]
  - Weight increased [Unknown]
  - Hypothermia [Unknown]
  - Toxicity to various agents [Unknown]
